FAERS Safety Report 25124054 (Version 1)
Quarter: 2025Q1

REPORT INFORMATION
  Report Type: Spontaneous
  Country: CA (occurrence: CA)
  Receive Date: 20250326
  Receipt Date: 20250326
  Transmission Date: 20250409
  Serious: Yes (Other)
  Sender: FRESENIUS KABI
  Company Number: CA-FreseniusKabi-FK202504521

PATIENT
  Age: 24 Year
  Sex: Female

DRUGS (1)
  1. VANCOMYCIN [Suspect]
     Active Substance: VANCOMYCIN
     Indication: Systemic infection
     Dosage: FOA: NOT SPECIFIED
     Route: 042

REACTIONS (1)
  - Acute kidney injury [Recovering/Resolving]
